FAERS Safety Report 7144531-2 (Version None)
Quarter: 2010Q4

REPORT INFORMATION
  Report Type: 
  Country: None (occurrence: None)
  Receive Date: 20101208
  Receipt Date: 20101201
  Transmission Date: 20110411
  Serious: Yes (Other)
  Sender: FDA-Public Use
  Company Number: US-BAYER-2010-000993

PATIENT
  Sex: Female
  Weight: 64.853 kg

DRUGS (3)
  1. ALEVE (CAPLET) [Suspect]
     Indication: TOOTHACHE
     Dosage: 5 DF, ONCE
     Dates: start: 20101130, end: 20101130
  2. MIDOL EXTENDED RELIEF CAPLETS [Suspect]
     Dosage: 6 DF, ONCE
     Dates: start: 20101130, end: 20101130
  3. ALEVE (CAPLET) [Suspect]
     Dosage: 3 DF, ONCE
     Dates: start: 20101201, end: 20101201

REACTIONS (3)
  - COUGH [None]
  - GASTRIC DISORDER [None]
  - HAEMOPTYSIS [None]
